FAERS Safety Report 4918301-7 (Version None)
Quarter: 2006Q1

REPORT INFORMATION
  Report Type: 
  Country: None (occurrence: None)
  Receive Date: 20060215
  Receipt Date: 20060131
  Transmission Date: 20060701
  Serious: No
  Sender: FDA-Public Use
  Company Number: 2005S1010755

PATIENT
  Age: 86 Year
  Sex: Female
  Weight: 40.3701 kg

DRUGS (9)
  1. NITROGLYCERIN [Suspect]
     Indication: ANGINA PECTORIS
     Dosage: 0.2 MG/HR; TRANS; 0.4 MG/HR;X1;TRANS; 02 MG/HR;TRANS
     Route: 062
     Dates: end: 20051008
  2. NITROGLYCERIN [Suspect]
     Indication: CARDIAC FAILURE CONGESTIVE
     Dosage: 0.2 MG/HR; TRANS; 0.4 MG/HR;X1;TRANS; 02 MG/HR;TRANS
     Route: 062
     Dates: end: 20051008
  3. NITROGLYCERIN [Suspect]
     Indication: ANGINA PECTORIS
     Dosage: 0.2 MG/HR; TRANS; 0.4 MG/HR;X1;TRANS; 02 MG/HR;TRANS
     Route: 062
     Dates: start: 20051008
  4. NITROGLYCERIN [Suspect]
     Indication: CARDIAC FAILURE CONGESTIVE
     Dosage: 0.2 MG/HR; TRANS; 0.4 MG/HR;X1;TRANS; 02 MG/HR;TRANS
     Route: 062
     Dates: start: 20051008
  5. NITROGLYCERIN [Suspect]
     Indication: ANGINA PECTORIS
     Dosage: 0.2 MG/HR; TRANS; 0.4 MG/HR;X1;TRANS; 02 MG/HR;TRANS
     Route: 062
     Dates: start: 20051008
  6. NITROGLYCERIN [Suspect]
     Indication: CARDIAC FAILURE CONGESTIVE
     Dosage: 0.2 MG/HR; TRANS; 0.4 MG/HR;X1;TRANS; 02 MG/HR;TRANS
     Route: 062
     Dates: start: 20051008
  7. CARVEDILOL [Concomitant]
  8. LEVOTHYROXINE SODIUM [Concomitant]
  9. CITALOPRAM HYDROBROMIDE [Concomitant]

REACTIONS (8)
  - ANOREXIA [None]
  - ASTHENIA [None]
  - BALANCE DISORDER [None]
  - BLOOD PRESSURE DECREASED [None]
  - FALL [None]
  - INCORRECT DOSE ADMINISTERED [None]
  - SYNCOPE [None]
  - WRONG TECHNIQUE IN DRUG USAGE PROCESS [None]
